FAERS Safety Report 5313915-7 (Version None)
Quarter: 2007Q2

REPORT INFORMATION
  Report Type: 
  Country: None (occurrence: None)
  Receive Date: 20070501
  Receipt Date: 20070423
  Transmission Date: 20071010
  Serious: Yes (Hospitalization)
  Sender: FDA-Public Use
  Company Number: SE-GLAXOSMITHKLINE-B0466813A

PATIENT
  Age: 79 Year
  Sex: Male

DRUGS (9)
  1. ACETAMINOPHEN [Suspect]
     Dosage: 1G PER DAY
     Route: 048
     Dates: start: 20060301
  2. OMEPRAZOLE [Suspect]
     Dosage: 40MG PER DAY
     Route: 048
     Dates: start: 20060301, end: 20060403
  3. ZOPIKLON [Suspect]
     Dosage: 5MG AT NIGHT
     Route: 048
     Dates: start: 20060301, end: 20060401
  4. PROPAVAN [Suspect]
     Dosage: 25MG AT NIGHT
     Route: 048
     Dates: start: 20060301, end: 20060401
  5. HALDOL [Suspect]
     Indication: HALLUCINATION
     Route: 065
     Dates: start: 20060301, end: 20060301
  6. STESOLID [Suspect]
     Indication: HALLUCINATION
     Route: 065
     Dates: start: 20060301, end: 20060301
  7. FRAGMIN [Suspect]
     Route: 058
     Dates: start: 20060301
  8. METOPROLOL SUCCINATE [Concomitant]
     Route: 065
  9. NITROMEX [Concomitant]
     Route: 060

REACTIONS (2)
  - ERYTHEMA MULTIFORME [None]
  - RASH [None]
